FAERS Safety Report 5618301-8 (Version None)
Quarter: 2008Q1

REPORT INFORMATION
  Report Type: 
  Country: None (occurrence: None)
  Receive Date: 20080205
  Receipt Date: 20080205
  Transmission Date: 20080703
  Serious: Yes (Other)
  Sender: FDA-Public Use
  Company Number: None

PATIENT
  Sex: Female

DRUGS (1)
  1. VARENICLINE [Suspect]
     Indication: SMOKING CESSATION THERAPY
     Dosage: 1 MG TWICE A DAY PO
     Route: 048
     Dates: start: 20071208, end: 20080131

REACTIONS (4)
  - ANGER [None]
  - FEELING OF DESPAIR [None]
  - SUICIDAL IDEATION [None]
  - TEARFULNESS [None]
